FAERS Safety Report 9973241 (Version 2)
Quarter: 2014Q1

REPORT INFORMATION
  Report Type: Report from Study
  Country: US (occurrence: US)
  Receive Date: 20140306
  Receipt Date: 20140306
  Transmission Date: 20141002
  Serious: No
  Sender: FDA-Public Use
  Company Number: US-ABBVIE-13P-163-1139884-00

PATIENT
  Age: 56 Year
  Sex: Male

DRUGS (10)
  1. HUMIRA [Suspect]
     Indication: CROHN^S DISEASE
     Dates: start: 20130627
  2. OPANA [Concomitant]
     Indication: PRODUCT USED FOR UNKNOWN INDICATION
  3. MIRAPEX [Concomitant]
     Indication: RESTLESS LEGS SYNDROME
     Dosage: AS REQUIRED
  4. MOBIC [Concomitant]
     Indication: PAIN
  5. LYRICA [Concomitant]
     Indication: PAIN
  6. FLEXERIL [Concomitant]
     Indication: PRODUCT USED FOR UNKNOWN INDICATION
     Dosage: AT BEDTIME AS REQUIRED
  7. 6-MP [Concomitant]
     Indication: PRODUCT USED FOR UNKNOWN INDICATION
  8. 6-MP [Concomitant]
  9. CELEXA [Concomitant]
     Indication: DEPRESSION
  10. OPANA IR [Concomitant]
     Indication: BREAKTHROUGH PAIN

REACTIONS (16)
  - Musculoskeletal stiffness [Not Recovered/Not Resolved]
  - Flatulence [Not Recovered/Not Resolved]
  - Mucous stools [Not Recovered/Not Resolved]
  - Haematochezia [Not Recovered/Not Resolved]
  - Abnormal faeces [Unknown]
  - Faeces discoloured [Unknown]
  - Asthenia [Recovering/Resolving]
  - Depression [Unknown]
  - Anxiety [Unknown]
  - Diarrhoea [Unknown]
  - Diarrhoea [Recovering/Resolving]
  - Myalgia [Recovering/Resolving]
  - Arthralgia [Recovering/Resolving]
  - Rectal discharge [Recovering/Resolving]
  - Muscular weakness [Recovering/Resolving]
  - Diarrhoea haemorrhagic [Recovering/Resolving]
